FAERS Safety Report 21615767 (Version 1)
Quarter: 2022Q4

REPORT INFORMATION
  Report Type: Spontaneous
  Country: CA (occurrence: CA)
  Receive Date: 20221118
  Receipt Date: 20221118
  Transmission Date: 20230113
  Serious: Yes (Other)
  Sender: FDA-Public Use
  Company Number: None

PATIENT
  Age: 61 Year
  Sex: Female

DRUGS (5)
  1. CARBOPLATIN [Suspect]
     Active Substance: CARBOPLATIN
     Indication: Chemotherapy
     Dosage: LIQUID INTRAVENOUS, 10 MG/ML, ROUTE: INTRAVENOUS DRIP
  2. BENADRYL [Concomitant]
     Active Substance: DIPHENHYDRAMINE HYDROCHLORIDE
  3. DEXAMETHASONE [Concomitant]
     Active Substance: DEXAMETHASONE
     Route: 065
  4. FAMOTIDINE [Concomitant]
     Active Substance: FAMOTIDINE
  5. PACLITAXEL [Concomitant]
     Active Substance: PACLITAXEL
     Dosage: LIQUID INTRAVENOUS

REACTIONS (4)
  - Burning sensation [Unknown]
  - Chest discomfort [Unknown]
  - Flushing [Unknown]
  - Throat tightness [Unknown]
